FAERS Safety Report 9105677 (Version 2)
Quarter: 2013Q2

REPORT INFORMATION
  Report Type: Spontaneous
  Country: US (occurrence: US)
  Receive Date: 20130221
  Receipt Date: 20130508
  Transmission Date: 20140414
  Serious: Yes (Other)
  Sender: FDA-Public Use
  Company Number: US-GLAXOSMITHKLINE-A1012482A

PATIENT
  Age: 20 Year
  Sex: Female

DRUGS (4)
  1. VALACYCLOVIR [Suspect]
     Indication: ORAL HERPES
     Dosage: 500MG SINGLE DOSE
     Route: 048
     Dates: start: 20130213, end: 20130213
  2. ZOFRAN [Suspect]
     Indication: PRODUCT USED FOR UNKNOWN INDICATION
     Route: 065
  3. PRENATAL VITAMINS [Concomitant]
  4. TYLENOL [Concomitant]

REACTIONS (2)
  - Abortion spontaneous [Unknown]
  - Exposure during pregnancy [Unknown]
